FAERS Safety Report 4813631-1 (Version None)
Quarter: 2005Q4

REPORT INFORMATION
  Report Type: 
  Country: None (occurrence: None)
  Receive Date: 20051028
  Receipt Date: 20041029
  Transmission Date: 20060501
  Serious: No
  Sender: FDA-Public Use
  Company Number: US-GLAXOSMITHKLINE-A0531845A

PATIENT
  Age: 43 Year
  Sex: Female

DRUGS (6)
  1. IMITREX [Suspect]
     Indication: MIGRAINE
     Route: 045
     Dates: start: 20040101
  2. XANAX [Concomitant]
  3. UNKNOWN MEDICATION [Concomitant]
  4. LIPITOR [Concomitant]
  5. SOLAXIN [Concomitant]
  6. ZOLOFT [Concomitant]

REACTIONS (1)
  - DRUG INEFFECTIVE [None]
